FAERS Safety Report 17168253 (Version 1)
Quarter: 2019Q4

REPORT INFORMATION
  Report Type: Spontaneous
  Country: SE (occurrence: SE)
  Receive Date: 20191218
  Receipt Date: 20191218
  Transmission Date: 20200122
  Serious: Yes (Hospitalization)
  Sender: FDA-Public Use
  Company Number: SE-ACCORD-165891

PATIENT
  Age: 16 Year
  Sex: Female

DRUGS (3)
  1. PROPAVAN [Suspect]
     Active Substance: PROPIOMAZINE
     Dosage: ABOUT 10 PCS
     Route: 048
     Dates: start: 20190502, end: 20190502
  2. PARACETAMOL [Suspect]
     Active Substance: ACETAMINOPHEN
     Dosage: 5 G
     Route: 048
     Dates: start: 20190502, end: 20190502
  3. QUETIAPINE. [Suspect]
     Active Substance: QUETIAPINE
     Dosage: 10-15 X 25 MG
     Route: 048
     Dates: start: 20190502, end: 20190502

REACTIONS (4)
  - Intentional overdose [Unknown]
  - Fatigue [Unknown]
  - Vomiting [Unknown]
  - Intentional self-injury [Unknown]

NARRATIVE: CASE EVENT DATE: 20190502
